FAERS Safety Report 25015945 (Version 1)
Quarter: 2025Q1

REPORT INFORMATION
  Report Type: Spontaneous
  Country: CA (occurrence: CA)
  Receive Date: 20250227
  Receipt Date: 20250227
  Transmission Date: 20250408
  Serious: Yes (Other)
  Sender: ABBVIE
  Company Number: CA-ABBVIE-6151903

PATIENT
  Age: 49 Year
  Sex: Female

DRUGS (1)
  1. LINACLOTIDE [Suspect]
     Active Substance: LINACLOTIDE
     Indication: Irritable bowel syndrome
     Dosage: FIRST ADMIN DATE 4 TO 5 YEARS
     Route: 048

REACTIONS (2)
  - Impaired gastric emptying [Unknown]
  - Pain [Unknown]

NARRATIVE: CASE EVENT DATE: 20250101
